FAERS Safety Report 12729152 (Version 1)
Quarter: 2016Q3

REPORT INFORMATION
  Report Type: Spontaneous
  Country: AU (occurrence: AU)
  Receive Date: 20160909
  Receipt Date: 20160909
  Transmission Date: 20161109
  Serious: Yes (Other)
  Sender: FDA-Public Use
  Company Number: AU-JNJFOC-20160907602

PATIENT

DRUGS (1)
  1. DOXORUBICIN HYDROCHLORIDE. [Suspect]
     Active Substance: DOXORUBICIN HYDROCHLORIDE
     Indication: SOFT TISSUE SARCOMA
     Dosage: 72 HOURS OF CONTINUOUS INFUSIONAL DOXORUBICIN
     Route: 065

REACTIONS (3)
  - Product use issue [Unknown]
  - Wound complication [Unknown]
  - Off label use [Unknown]
